FAERS Safety Report 7641583-8 (Version None)
Quarter: 2011Q3

REPORT INFORMATION
  Report Type: 
  Country: None (occurrence: None)
  Receive Date: 20110728
  Receipt Date: 20110719
  Transmission Date: 20111222
  Serious: Yes (Hospitalization, Other)
  Sender: FDA-Public Use
  Company Number: US-ASTRAZENECA-2011SE43283

PATIENT
  Age: 56 Year
  Sex: Female

DRUGS (2)
  1. NEXIUM [Suspect]
     Route: 048
  2. PREVACID [Concomitant]

REACTIONS (6)
  - VOMITING [None]
  - ECONOMIC PROBLEM [None]
  - VOLVULUS [None]
  - DRUG DOSE OMISSION [None]
  - IMPAIRED GASTRIC EMPTYING [None]
  - ULCER [None]
